FAERS Safety Report 10079806 (Version 1)
Quarter: 2014Q2

REPORT INFORMATION
  Report Type: Report from Study
  Country: BR (occurrence: BR)
  Receive Date: 20140415
  Receipt Date: 20140415
  Transmission Date: 20141212
  Serious: Yes (Other)
  Sender: FDA-Public Use
  Company Number: ALCN2014BR002320

PATIENT
  Sex: Male
  Weight: 104 kg

DRUGS (5)
  1. DUOTRAV [BAC] [Suspect]
     Indication: GLAUCOMA
     Dosage: 1 GTT, BID
     Route: 047
     Dates: start: 2007
  2. MAXIDEX OPHTHALMIC//DEXAMETHASONE [Concomitant]
     Indication: ANTIINFLAMMATORY THERAPY
     Dosage: 2 GTT, BID
     Route: 047
     Dates: start: 201309, end: 201401
  3. TIMOLOL [Concomitant]
     Indication: GLAUCOMA
     Dosage: 1 GTT, Q3H
     Route: 047
     Dates: start: 201309, end: 201312
  4. DIAMOX//ACETAZOLAMIDE [Concomitant]
     Indication: GLAUCOMA
     Dosage: 1 GTT, TID
     Route: 047
     Dates: start: 201303, end: 20130904
  5. ALPHAGAN Z [Concomitant]
     Indication: GLAUCOMA
     Dosage: 1 GTT, BID
     Route: 047
     Dates: start: 201309, end: 201310

REACTIONS (1)
  - Intraocular pressure increased [Unknown]
